FAERS Safety Report 4579126-8 (Version None)
Quarter: 2005Q1

REPORT INFORMATION
  Report Type: 
  Country: None (occurrence: None)
  Receive Date: 20050121
  Receipt Date: 20040422
  Transmission Date: 20050727
  Serious: Yes (Hospitalization)
  Sender: FDA-Public Use
  Company Number: STA-AE-04-MTX-168

PATIENT
  Age: 73 Year
  Sex: Female

DRUGS (14)
  1. METHOTREXATE (METHOTREXATE, UNSPEC) [Suspect]
  2. PLACEBO FOR ETANERCEPT (INJECTION) [Suspect]
     Indication: WEGENER'S GRANULOMATOSIS
     Dosage: 1 DOSE 2X PER 1 WK, SC
     Route: 058
  3. CALCIUM FOLINATE (CALCIUM FOLINATE) [Concomitant]
  4. IRBESARTAN (IRBESATAN) [Concomitant]
  5. AVANDIA (ROSIGLITZONE MALEATE) [Concomitant]
  6. ALBUTEROL SULFATE [Concomitant]
  7. IPRATROPIUM BROMIDE [Concomitant]
  8. IRON(IRON) [Concomitant]
  9. SULFAMETHOXAZOLE + TRIMETHOPRIM [Concomitant]
  10. GLIPIZIDE [Concomitant]
  11. LEVOTHYROXINE SODIUM(LEVOTHYROXINE SODI8M) [Concomitant]
  12. ACETYLSALICYLIC ACID SRT [Concomitant]
  13. BETAXOLOL HYDROCHLORIDE (BETAXOLOL HYDROCHLORIDE) [Concomitant]
  14. CALCIUM (CALCIUM) [Concomitant]

REACTIONS (1)
  - PNEUMONIA [None]
